FAERS Safety Report 15525849 (Version 1)
Quarter: 2018Q4

REPORT INFORMATION
  Report Type: Spontaneous
  Country: RU (occurrence: RU)
  Receive Date: 20181018
  Receipt Date: 20181018
  Transmission Date: 20190205
  Serious: Yes (Death, Disabling)
  Sender: FDA-Public Use
  Company Number: RU-BAYER-2018-189139

PATIENT
  Age: 41 Year
  Sex: Male

DRUGS (4)
  1. INTERFERON BETA - 1B [Suspect]
     Active Substance: INTERFERON BETA-1B
     Indication: MULTIPLE SCLEROSIS
     Dosage: UNK
  2. DEXAMETASON [Suspect]
     Active Substance: DEXAMETHASONE
     Indication: MULTIPLE SCLEROSIS RELAPSE
     Dosage: UNK
  3. PREDNISOLON [PREDNISOLONE] [Suspect]
     Active Substance: PREDNISOLONE
     Indication: MULTIPLE SCLEROSIS RELAPSE
     Dosage: UNK
  4. NATALIZUMAB [Suspect]
     Active Substance: NATALIZUMAB
     Indication: MULTIPLE SCLEROSIS
     Dosage: UNK
     Dates: start: 2012

REACTIONS (3)
  - Multiple sclerosis relapse [None]
  - Progressive multifocal leukoencephalopathy [Fatal]
  - Brain oedema [Fatal]
